FAERS Safety Report 9961315 (Version 1)
Quarter: 2014Q1

REPORT INFORMATION
  Report Type: Spontaneous
  Country: BR (occurrence: BR)
  Receive Date: 20140305
  Receipt Date: 20140305
  Transmission Date: 20141002
  Serious: Yes (Other)
  Sender: FDA-Public Use
  Company Number: PHHY2014BR024140

PATIENT
  Sex: 0

DRUGS (1)
  1. ILARIS [Suspect]
     Dosage: UNK
     Dates: start: 201401

REACTIONS (6)
  - Histiocytosis haematophagic [Unknown]
  - Leukopenia [Unknown]
  - Thrombocytopenia [Unknown]
  - Hepatotoxicity [Unknown]
  - Hepatic enzyme increased [Unknown]
  - Respiratory disorder [Unknown]
